FAERS Safety Report 9404821 (Version 2)
Quarter: 2019Q2

REPORT INFORMATION
  Report Type: Spontaneous
  Country: US (occurrence: US)
  Receive Date: 20130717
  Receipt Date: 20190419
  Transmission Date: 20190711
  Serious: No
  Sender: FDA-Public Use
  Company Number: US-PFIZER INC-2013207948

PATIENT
  Age: 76 Year
  Sex: Female

DRUGS (19)
  1. FELDENE [Suspect]
     Active Substance: PIROXICAM
     Dosage: UNK
  2. OCCLUSAL HP [Suspect]
     Active Substance: SALICYLIC ACID
     Dosage: 17% TOPICAL LIQUID
  3. LEVOFLOXACIN. [Suspect]
     Active Substance: LEVOFLOXACIN
     Dosage: UNK
  4. MORPHINE SULFATE. [Suspect]
     Active Substance: MORPHINE SULFATE
     Dosage: UNK
  5. BEXTRA [BUCINDOLOL HYDROCHLORIDE] [Suspect]
     Active Substance: BUCINDOLOL HYDROCHLORIDE
     Dosage: UNK
  6. MEDROL [Suspect]
     Active Substance: METHYLPREDNISOLONE
     Dosage: UNK
  7. PREDNISONE. [Suspect]
     Active Substance: PREDNISONE
     Dosage: UNK
  8. VIOXX [Suspect]
     Active Substance: ROFECOXIB
     Dosage: UNK
  9. ALPHAGAN P [Suspect]
     Active Substance: BRIMONIDINE TARTRATE
     Dosage: UNK
  10. FOSAMAX [Suspect]
     Active Substance: ALENDRONATE SODIUM
     Dosage: UNK
  11. VOLTAREN [Suspect]
     Active Substance: DICLOFENAC SODIUM
     Dosage: UNK
  12. LEVOTHYROXINE SODIUM. [Suspect]
     Active Substance: LEVOTHYROXINE SODIUM
     Dosage: UNK
  13. LODINE [Suspect]
     Active Substance: ETODOLAC
     Dosage: UNK
  14. BIOFER [Suspect]
     Active Substance: STREPTOCOCCUS FAECALIS
     Dosage: UNK
  15. BRIMONIDINE [Suspect]
     Active Substance: BRIMONIDINE TARTRATE
     Dosage: UNK
  16. NORTRIPTYLIN [Suspect]
     Active Substance: NORTRIPTYLINE
     Dosage: UNK
  17. CELEBREX [Suspect]
     Active Substance: CELECOXIB
     Dosage: UNK
  18. METRONIDAZOLE. [Suspect]
     Active Substance: METRONIDAZOLE
     Dosage: UNK
  19. BIAXIN [Suspect]
     Active Substance: CLARITHROMYCIN
     Dosage: UNK

REACTIONS (1)
  - Drug hypersensitivity [Unknown]
